FAERS Safety Report 9464898 (Version 1)
Quarter: 2013Q3

REPORT INFORMATION
  Report Type: Spontaneous
  Country: SG (occurrence: SG)
  Receive Date: 20130819
  Receipt Date: 20130819
  Transmission Date: 20140515
  Serious: Yes (Hospitalization)
  Sender: FDA-Public Use
  Company Number: SG-PFIZER INC-2013233656

PATIENT
  Age: 32 Year
  Sex: Female

DRUGS (1)
  1. CLINDAMYCIN PHOSPHATE [Suspect]
     Indication: CAESAREAN SECTION
     Dosage: 500 MG, UNK
     Route: 042
     Dates: start: 20130704, end: 20130704

REACTIONS (1)
  - Eye swelling [Recovered/Resolved]
